FAERS Safety Report 9212763 (Version 1)
Quarter: 2013Q1

REPORT INFORMATION
  Report Type: Spontaneous
  Country: US (occurrence: None)
  Receive Date: 20120820
  Receipt Date: 20120820
  Transmission Date: 20140127
  Serious: No
  Sender: FDA-Public Use
  Company Number: 1000037060

PATIENT
  Age: 15 Year
  Sex: Female

DRUGS (1)
  1. VIIBRYD [Suspect]
     Route: 048
     Dates: start: 20120712, end: 20120712

REACTIONS (2)
  - Intentional drug misuse [None]
  - Panic attack [None]
